FAERS Safety Report 8676965 (Version 7)
Quarter: 2014Q1

REPORT INFORMATION
  Report Type: Report from Study
  Country: US (occurrence: US)
  Receive Date: 20120723
  Receipt Date: 20140304
  Transmission Date: 20141002
  Serious: Yes (Hospitalization)
  Sender: FDA-Public Use
  Company Number: US-JNJFOC-20111200986

PATIENT
  Age: 91 Year
  Sex: Male
  Weight: 68.95 kg

DRUGS (16)
  1. ABIRATERONE ACETATE [Suspect]
     Route: 048
  2. ABIRATERONE ACETATE [Suspect]
     Indication: PROSTATE CANCER METASTATIC
     Route: 048
     Dates: start: 20110504, end: 20111129
  3. PREDNISONE [Suspect]
     Indication: PROSTATE CANCER METASTATIC
     Route: 048
     Dates: start: 20110504, end: 20111129
  4. POTASSIUM [Concomitant]
     Indication: HYPOKALAEMIA
     Route: 048
     Dates: start: 20110821, end: 20111129
  5. XEROFORM [Concomitant]
     Indication: WOUND
     Route: 061
     Dates: start: 20111020, end: 20111117
  6. XEROFORM [Concomitant]
     Indication: BURNS SECOND DEGREE
     Route: 061
     Dates: start: 20111020, end: 20111117
  7. NEXIUM [Concomitant]
     Indication: GASTROOESOPHAGEAL REFLUX DISEASE
     Route: 048
     Dates: start: 20070826, end: 20111129
  8. NEXIUM [Concomitant]
     Indication: GASTROOESOPHAGEAL REFLUX DISEASE
     Route: 048
     Dates: start: 20111203, end: 20111206
  9. SIMVASTATIN [Concomitant]
     Indication: HYPERCHOLESTEROLAEMIA
     Route: 048
     Dates: start: 2002
  10. CLONIDINE [Concomitant]
     Indication: HYPERTENSION
     Route: 048
     Dates: start: 20111201, end: 20111205
  11. CLONIDINE [Concomitant]
     Indication: HYPERTENSION
     Route: 048
     Dates: start: 201102, end: 20111201
  12. METOPROLOL [Concomitant]
     Indication: HYPERTENSION
     Route: 048
     Dates: start: 201102, end: 20111206
  13. CALCIUM CITRATE WITH VITAMIN D [Concomitant]
     Indication: NUTRITIONAL SUPPLEMENTATION
     Route: 048
     Dates: start: 20060901
  14. COSOPT [Concomitant]
     Indication: GLAUCOMA
     Route: 047
     Dates: start: 1990
  15. PRED FORTE [Concomitant]
     Indication: GLAUCOMA
     Route: 047
     Dates: start: 1990
  16. TRAVATAN [Concomitant]
     Indication: GLAUCOMA
     Route: 047
     Dates: start: 1990

REACTIONS (4)
  - Dizziness [Recovered/Resolved]
  - Hypertension [Recovered/Resolved]
  - Dizziness [Recovered/Resolved]
  - Hypertensive crisis [Recovered/Resolved]
